FAERS Safety Report 10423738 (Version 1)
Quarter: 2014Q3

REPORT INFORMATION
  Report Type: Spontaneous
  Country: CO (occurrence: CO)
  Receive Date: 20140902
  Receipt Date: 20140902
  Transmission Date: 20150326
  Serious: Yes (Other)
  Sender: FDA-Public Use
  Company Number: CO-PFIZER INC-2014239703

PATIENT
  Sex: Female

DRUGS (2)
  1. PHENYTOIN. [Suspect]
     Active Substance: PHENYTOIN
     Dosage: UNK
  2. EPAMIN [Suspect]
     Active Substance: PHENYTOIN SODIUM
     Dosage: 4 CAPSULES PER DAY

REACTIONS (1)
  - Convulsion [Unknown]
